FAERS Safety Report 4825506-2 (Version None)
Quarter: 2005Q4

REPORT INFORMATION
  Report Type: 
  Country: None (occurrence: None)
  Receive Date: 20051111
  Receipt Date: 20050907
  Transmission Date: 20060501
  Serious: Yes (Other)
  Sender: FDA-Public Use
  Company Number: 2005UW13262

PATIENT
  Age: 57 Year
  Sex: Male
  Weight: 86.2 kg

DRUGS (1)
  1. NEXIUM [Suspect]
     Route: 048
     Dates: start: 20050815, end: 20050816

REACTIONS (3)
  - DEMENTIA ALZHEIMER'S TYPE [None]
  - HALLUCINATION [None]
  - MIGRAINE [None]
